FAERS Safety Report 8259061-4 (Version None)
Quarter: 2012Q2

REPORT INFORMATION
  Report Type: 
  Country: None (occurrence: None)
  Receive Date: 20120404
  Receipt Date: 20120329
  Transmission Date: 20120825
  Serious: Yes (Other)
  Sender: FDA-Public Use
  Company Number: RO-ROCHE-1054135

PATIENT
  Sex: Female
  Weight: 84 kg

DRUGS (7)
  1. PREDUCTAL MR [Concomitant]
     Indication: MYOCARDIAL ISCHAEMIA
     Route: 048
  2. AURONAL [Concomitant]
     Indication: HYPERTENSION
     Route: 048
  3. INDAPAMIDE [Concomitant]
     Indication: HYPERTENSION
     Route: 048
  4. TOCILIZUMAB [Suspect]
     Indication: RHEUMATOID ARTHRITIS
     Route: 042
     Dates: start: 20120223
  5. TOCILIZUMAB [Suspect]
     Dosage: DOSE REDUCED
  6. METHOTREXATE [Concomitant]
     Indication: RHEUMATOID ARTHRITIS
     Route: 048
  7. NEBIVOLOL HCL [Concomitant]
     Indication: HYPERTENSION
     Route: 048

REACTIONS (1)
  - PANCYTOPENIA [None]
